FAERS Safety Report 11819624 (Version 1)
Quarter: 2015Q4

REPORT INFORMATION
  Report Type: Spontaneous
  Country: US (occurrence: US)
  Receive Date: 20151210
  Receipt Date: 20151210
  Transmission Date: 20160305
  Serious: No
  Sender: FDA-Public Use
  Company Number: US-009507513-1512USA005363

PATIENT
  Sex: Male

DRUGS (1)
  1. NOXAFIL [Suspect]
     Active Substance: POSACONAZOLE
     Dosage: 100 MG, UNSPECIFIED FREQUENCY
     Route: 048

REACTIONS (3)
  - Somnolence [Unknown]
  - Nausea [Unknown]
  - Malaise [Unknown]
